FAERS Safety Report 5384609-7 (Version None)
Quarter: 2007Q3

REPORT INFORMATION
  Report Type: 
  Country: None (occurrence: None)
  Receive Date: 20070711
  Receipt Date: 20070704
  Transmission Date: 20080115
  Serious: Yes (Hospitalization)
  Sender: FDA-Public Use
  Company Number: IT-ROXANE LABORATORIES, INC-2007-BP-16893RO

PATIENT
  Age: 63 Year
  Sex: Female

DRUGS (8)
  1. LORAZEPAM [Suspect]
  2. TIROXIN [Suspect]
  3. OMEPRAZOLE [Suspect]
  4. IAPRAZINE [Suspect]
  5. CLOTIAPINE [Suspect]
  6. VALPROIC ACID [Suspect]
  7. CLONAZEPAM [Suspect]
  8. PIPERACILLIN [Suspect]

REACTIONS (1)
  - TOXIC EPIDERMAL NECROLYSIS [None]
